FAERS Safety Report 5516898-X (Version None)
Quarter: 2007Q4

REPORT INFORMATION
  Report Type: 
  Country: None (occurrence: None)
  Receive Date: 20071114
  Receipt Date: 20071031
  Transmission Date: 20080405
  Serious: No
  Sender: FDA-Public Use
  Company Number: JP-ASTRAZENECA-2007AP06799

PATIENT
  Age: 80 Year
  Sex: Male

DRUGS (3)
  1. ANAPEINE INJECTION [Suspect]
     Indication: EPIDURAL ANAESTHESIA
     Dosage: 4 ML/H OF THE MIXTURE OF 3 DRUGS
     Route: 008
  2. BUPRENORPHINE HYDROCHLORIDE [Concomitant]
     Indication: EPIDURAL ANAESTHESIA
     Dosage: 4 ML/H OF THE MIXTURE OF 3 DRUGS
     Route: 008
  3. DROPERIDOL [Concomitant]
     Indication: EPIDURAL ANAESTHESIA
     Dosage: 4 ML/H OF THE MIXTURE OF 3 DRUGS
     Route: 008

REACTIONS (1)
  - COMPARTMENT SYNDROME [None]
